FAERS Safety Report 25473143 (Version 1)
Quarter: 2025Q2

REPORT INFORMATION
  Report Type: Spontaneous
  Country: IT (occurrence: IT)
  Receive Date: 20250624
  Receipt Date: 20250624
  Transmission Date: 20250716
  Serious: Yes (Other)
  Sender: MERCK SHARP & DOHME LLC
  Company Number: None

PATIENT
  Age: 55 Year
  Sex: Male
  Weight: 74 kg

DRUGS (2)
  1. PEMBROLIZUMAB [Suspect]
     Active Substance: PEMBROLIZUMAB
     Indication: Renal cancer
     Route: 042
     Dates: start: 20250115, end: 20250115
  2. AXITINIB [Suspect]
     Active Substance: AXITINIB
     Indication: Renal cancer
     Route: 048

REACTIONS (4)
  - Azotaemia [Not Recovered/Not Resolved]
  - Hyperkalaemia [Recovering/Resolving]
  - Hyponatraemia [Recovering/Resolving]
  - Blood creatinine increased [Not Recovered/Not Resolved]

NARRATIVE: CASE EVENT DATE: 20250130
